FAERS Safety Report 8302605-4 (Version None)
Quarter: 2012Q1

REPORT INFORMATION
  Report Type: 
  Country: None (occurrence: None)
  Receive Date: 20120326
  Receipt Date: 20110707
  Transmission Date: 20120608
  Serious: Yes (Other)
  Sender: FDA-Public Use
  Company Number: PHHY2011US19948

PATIENT
  Age: 78 Year
  Sex: Female

DRUGS (1)
  1. TASIGNA [Suspect]
     Indication: CHRONIC MYELOID LEUKAEMIA
     Dosage: 200 MG, BID, ORAL
     Route: 048
     Dates: start: 20110207, end: 20110706

REACTIONS (9)
  - WEIGHT DECREASED [None]
  - SWELLING [None]
  - HAEMOGLOBIN INCREASED [None]
  - FATIGUE [None]
  - PAIN IN EXTREMITY [None]
  - OEDEMA PERIPHERAL [None]
  - ARTHRALGIA [None]
  - DECREASED APPETITE [None]
  - POOR QUALITY SLEEP [None]
